FAERS Safety Report 5643281-9 (Version None)
Quarter: 2008Q1

REPORT INFORMATION
  Report Type: 
  Country: None (occurrence: None)
  Receive Date: 20080226
  Receipt Date: 20080211
  Transmission Date: 20080703
  Serious: Yes (Hospitalization)
  Sender: FDA-Public Use
  Company Number: DSJ-2008-01933

PATIENT
  Age: 10 Year
  Sex: Female

DRUGS (3)
  1. OFLOCET (OFLOXACIN) (OFLOXACIN) [Suspect]
     Indication: DRUG USE FOR UNKNOWN INDICATION
     Dosage: (2 IN 1 D), AURICULAR (OTIC)
     Route: 001
     Dates: start: 20070921, end: 20070929
  2. ORELOX (CEFPODOXIME PROXETIL) (CEFPODOXIME PROXETIL) [Suspect]
     Indication: DRUG USE FOR UNKNOWN INDICATION
     Dosage: (2 IN 1 D) PER ORAL
     Route: 048
     Dates: start: 20070921, end: 20070929
  3. ADVIL [Suspect]
     Indication: DRUG USE FOR UNKNOWN INDICATION
     Dosage: 200 MG, PER ORAL
     Route: 048
     Dates: start: 20070918, end: 20070921

REACTIONS (2)
  - THERAPEUTIC PRODUCT INEFFECTIVE [None]
  - THROMBOCYTOPENIC PURPURA [None]
